FAERS Safety Report 8447925-8 (Version None)
Quarter: 2012Q2

REPORT INFORMATION
  Report Type: 
  Country: None (occurrence: None)
  Receive Date: 20120619
  Receipt Date: 20120613
  Transmission Date: 20120825
  Serious: Yes (Other)
  Sender: FDA-Public Use
  Company Number: PHHY2011US37145

PATIENT
  Sex: Female

DRUGS (9)
  1. CITALOPRAM [Concomitant]
     Indication: DEPRESSION
     Dosage: 10 MG, QD
     Route: 048
  2. LIPITOR [Concomitant]
     Indication: BLOOD CHOLESTEROL INCREASED
     Dosage: 40 MG, QD
     Route: 048
  3. SYNTHROID [Concomitant]
     Indication: HYPOTHYROIDISM
     Dosage: 0.025 MG, QD
     Route: 048
  4. CARBATROL [Concomitant]
     Indication: PAIN
     Dosage: 200 MG, TID
     Route: 048
  5. TIZANIDINE HYDROCHLORIDE [Concomitant]
     Indication: MUSCLE SPASTICITY
     Dosage: 2 MG, TID
     Route: 048
  6. GILENYA [Suspect]
     Indication: MULTIPLE SCLEROSIS
     Dosage: 0.5 MG, QD
     Route: 048
     Dates: start: 20110411
  7. GABAPENTIN [Concomitant]
     Indication: PAIN
     Dosage: 1200 MG, BID
     Route: 048
  8. HYDROCHLOROTHIAZIDE [Concomitant]
     Indication: HYPERTENSION
     Dosage: 50 MG, QD
     Route: 048
  9. BACLOFEN [Concomitant]
     Indication: MUSCLE SPASTICITY
     Dosage: 20 MG, TID
     Route: 048

REACTIONS (8)
  - FEELING ABNORMAL [None]
  - FATIGUE [None]
  - HYPOTENSION [None]
  - FEELING COLD [None]
  - SOMNOLENCE [None]
  - NASOPHARYNGITIS [None]
  - HEART RATE DECREASED [None]
  - PARAESTHESIA [None]
